FAERS Safety Report 6094629-5 (Version None)
Quarter: 2009Q1

REPORT INFORMATION
  Report Type: 
  Country: None (occurrence: None)
  Receive Date: 20090226
  Receipt Date: 20090225
  Transmission Date: 20090719
  Serious: Yes (Death)
  Sender: FDA-Public Use
  Company Number: PHHY2009JP06711

PATIENT
  Sex: Male
  Weight: 65 kg

DRUGS (4)
  1. DIOVAN [Suspect]
     Indication: HYPERTENSION
     Dosage: 80 MG, QD
     Route: 048
     Dates: start: 20070929, end: 20071222
  2. ALFAROL [Concomitant]
     Dosage: 0.25 UG
     Dates: start: 20070929
  3. ZYLORIC ^FRESENIUS^ [Concomitant]
     Dosage: 100 MG
     Route: 048
  4. CALCIUM CARBONATE [Concomitant]
     Dosage: 1.5 G
     Route: 048
     Dates: start: 20070929

REACTIONS (1)
  - AORTIC DISSECTION [None]
